FAERS Safety Report 6866010-X (Version None)
Quarter: 2010Q3

REPORT INFORMATION
  Report Type: 
  Country: None (occurrence: None)
  Receive Date: 20100719
  Receipt Date: 20100702
  Transmission Date: 20110219
  Serious: Yes (Death)
  Sender: FDA-Public Use
  Company Number: 2010002762

PATIENT
  Age: 71 Year
  Sex: Male
  Weight: 51 kg

DRUGS (7)
  1. ERLOTINIB HYDROCHLORIDE [Suspect]
     Indication: LUNG ADENOCARCINOMA
     Dosage: 150 MG, QD, ORAL
     Route: 048
     Dates: start: 20080902, end: 20090328
  2. SUCRALFATE [Concomitant]
  3. BISOLVON (BROMHEXINE HYDROCHLORIDE) [Concomitant]
  4. OLMESARTAN MEDOXOMIL [Concomitant]
  5. CHLORPHENIRAMINE MALEATE [Concomitant]
  6. FUROSEMIDE [Concomitant]
  7. LANSOPRAZOLE [Concomitant]

REACTIONS (1)
  - DERMATITIS ACNEIFORM [None]
